FAERS Safety Report 13862967 (Version 1)
Quarter: 2017Q3

REPORT INFORMATION
  Report Type: Spontaneous
  Country: US (occurrence: US)
  Receive Date: 20170814
  Receipt Date: 20170814
  Transmission Date: 20171127
  Serious: No
  Sender: FDA-Public Use
  Company Number: US-ALEXION PHARMACEUTICALS INC.-A201709033

PATIENT
  Age: 69 Year
  Sex: Male

DRUGS (1)
  1. SOLIRIS [Suspect]
     Active Substance: ECULIZUMAB
     Indication: PAROXYSMAL NOCTURNAL HAEMOGLOBINURIA
     Dosage: 900 MG, Q2W
     Route: 042
     Dates: start: 20070425

REACTIONS (3)
  - Glomerular filtration rate decreased [Unknown]
  - Reticulocyte count increased [Unknown]
  - Reticulocyte percentage increased [Unknown]

NARRATIVE: CASE EVENT DATE: 20170808
